FAERS Safety Report 4815423-6 (Version None)
Quarter: 2005Q4

REPORT INFORMATION
  Report Type: 
  Country: None (occurrence: None)
  Receive Date: 20051027
  Receipt Date: 20051018
  Transmission Date: 20060501
  Serious: Yes (Death, Other)
  Sender: FDA-Public Use
  Company Number: 2005-03-1604

PATIENT
  Age: 36 Year
  Sex: Male

DRUGS (2)
  1. PEG-INTRON [Suspect]
     Indication: HEPATITIS C
     Dosage: 120 MCG QWK SUBCUTANEOUS
     Route: 058
     Dates: start: 20041129, end: 20050115
  2. REBETOL [Suspect]
     Indication: HEPATITIS C
     Dosage: 1000 MG QD ORAL
     Route: 048
     Dates: start: 20041129, end: 20050115

REACTIONS (6)
  - BRAIN OEDEMA [None]
  - DRUG ABUSER [None]
  - LUNG INFECTION [None]
  - PNEUMONIA [None]
  - REFUSAL OF TREATMENT BY PATIENT [None]
  - TUBERCULOSIS [None]
